FAERS Safety Report 6241232-X (Version None)
Quarter: 2009Q2

REPORT INFORMATION
  Report Type: 
  Country: None (occurrence: None)
  Receive Date: 20090623
  Receipt Date: 20090611
  Transmission Date: 20091009
  Serious: Yes (Hospitalization)
  Sender: FDA-Public Use
  Company Number: FR-MERCK-0906FRA00044

PATIENT
  Age: 54 Year
  Sex: Male

DRUGS (5)
  1. COZAAR [Suspect]
     Indication: HYPERTENSION
     Route: 048
     Dates: start: 20080326, end: 20080424
  2. PRAVASTATIN SODIUM [Suspect]
     Indication: DYSLIPIDAEMIA
     Route: 048
     Dates: start: 20080326
  3. FUROSEMIDE [Suspect]
     Indication: HYPERTENSION
     Route: 048
     Dates: start: 20080326
  4. NITRENDIPINE [Concomitant]
     Route: 048
  5. VERAPAMIL HYDROCHLORIDE [Concomitant]
     Route: 048

REACTIONS (2)
  - CYTOLYTIC HEPATITIS [None]
  - HEPATITIS CHOLESTATIC [None]
